FAERS Safety Report 19289409 (Version 3)
Quarter: 2021Q4

REPORT INFORMATION
  Report Type: Spontaneous
  Country: US (occurrence: US)
  Receive Date: 20210521
  Receipt Date: 20211129
  Transmission Date: 20220303
  Serious: Yes (Other)
  Sender: FDA-Public Use
  Company Number: US-PFIZER INC-2021537402

PATIENT
  Age: 60 Year
  Sex: Male

DRUGS (4)
  1. LYRICA [Suspect]
     Active Substance: PREGABALIN
     Dosage: 200 MG, 1X/DAY (1 TO 3 HOURS BEFORE BEDTIME)
     Route: 048
  2. LYRICA [Suspect]
     Active Substance: PREGABALIN
     Dosage: ONE CAPSULE ONCE A DAY
  3. LYRICA [Suspect]
     Active Substance: PREGABALIN
     Dosage: ONE CAPSULE THREE TIME A DAY
  4. LYRICA [Suspect]
     Active Substance: PREGABALIN
     Dosage: 150 MG, 1X/DAY (1 CAPSULE 1 TO 3 HOURS BEFORE BEDTIME)
     Route: 048

REACTIONS (2)
  - Drug dependence [Unknown]
  - Intentional product use issue [Unknown]
